FAERS Safety Report 20058115 (Version 1)
Quarter: 2021Q4

REPORT INFORMATION
  Report Type: Spontaneous
  Country: US (occurrence: US)
  Receive Date: 20211111
  Receipt Date: 20211111
  Transmission Date: 20220303
  Serious: Yes (Hospitalization, Other)
  Sender: FDA-Public Use
  Company Number: US-AMGEN-USASP2021173263

PATIENT
  Age: 57 Year
  Sex: Female

DRUGS (4)
  1. DARBEPOETIN ALFA [Suspect]
     Active Substance: DARBEPOETIN ALFA
     Indication: Anaemia
     Dosage: 60 MICROGRAM, Q2WK
     Route: 065
  2. DARBEPOETIN ALFA [Suspect]
     Active Substance: DARBEPOETIN ALFA
     Dosage: 150 MICROGRAM, Q2WK
     Route: 065
  3. ZINC SULFATE [Suspect]
     Active Substance: ZINC SULFATE
     Dosage: 220 MILLIGRAM, QD
     Route: 065
  4. CUPRIC CHLORIDE [Concomitant]
     Active Substance: CUPRIC CHLORIDE
     Dosage: 0.5 MILLIGRAM
     Route: 042

REACTIONS (9)
  - Pleural effusion [Unknown]
  - Bone marrow failure [Unknown]
  - Erythropoiesis abnormal [Unknown]
  - Hyperzincaemia [Recovered/Resolved]
  - Copper deficiency [Recovered/Resolved]
  - Anaemia [Unknown]
  - Therapeutic product effect decreased [Unknown]
  - Ceruloplasmin decreased [Unknown]
  - Upper respiratory tract infection [Unknown]

NARRATIVE: CASE EVENT DATE: 20171001
